FAERS Safety Report 17833834 (Version 1)
Quarter: 2020Q2

REPORT INFORMATION
  Report Type: Spontaneous
  Country: CA (occurrence: CA)
  Receive Date: 20200528
  Receipt Date: 20200528
  Transmission Date: 20200714
  Serious: Yes (Hospitalization)
  Sender: FDA-Public Use
  Company Number: CA-TEVA-2020-CA-1240184

PATIENT
  Age: 81 Year
  Sex: Male
  Weight: 77 kg

DRUGS (13)
  1. BISACODYL. [Concomitant]
     Active Substance: BISACODYL
  2. FUROSEMIDE. [Concomitant]
     Active Substance: FUROSEMIDE
  3. RESOTRAN FILM-COATED [Concomitant]
  4. FRAGMIN [Concomitant]
     Active Substance: DALTEPARIN SODIUM
  5. SEROQUEL [Concomitant]
     Active Substance: QUETIAPINE FUMARATE
  6. PANTOPRAZOLE [Suspect]
     Active Substance: PANTOPRAZOLE
     Indication: DUODENAL ULCER
     Route: 042
  7. PEG 3350 [Concomitant]
     Active Substance: POLYETHYLENE GLYCOL 3350
  8. VITAMIN D3 1000 IU TABLET [Concomitant]
  9. MELATONIN [Concomitant]
     Active Substance: MELATONIN
  10. SINEMET [Concomitant]
     Active Substance: CARBIDOPA\LEVODOPA
  11. PANTOPRAZOLE [Suspect]
     Active Substance: PANTOPRAZOLE
     Route: 048
  12. CIPRO [Concomitant]
     Active Substance: CIPROFLOXACIN HYDROCHLORIDE
  13. MIDAMOR [Concomitant]
     Active Substance: AMILORIDE HYDROCHLORIDE

REACTIONS (2)
  - Blood creatinine increased [Recovering/Resolving]
  - Tubulointerstitial nephritis [Recovering/Resolving]
